FAERS Safety Report 6477996-X (Version None)
Quarter: 2009Q4

REPORT INFORMATION
  Report Type: 
  Country: None (occurrence: None)
  Receive Date: 20091207
  Receipt Date: 20091126
  Transmission Date: 20100525
  Serious: Yes (Other)
  Sender: FDA-Public Use
  Company Number: B0609096A

PATIENT
  Age: 16 Year
  Sex: Female

DRUGS (2)
  1. RELENZA [Suspect]
     Indication: INFLUENZA
     Dosage: 10MG TWICE PER DAY
     Route: 055
     Dates: start: 20091124, end: 20091125
  2. CALONAL [Concomitant]
     Route: 048
     Dates: start: 20091124

REACTIONS (2)
  - ANAEMIA [None]
  - SYNCOPE [None]
